FAERS Safety Report 5099268-0 (Version None)
Quarter: 2006Q3

REPORT INFORMATION
  Report Type: 
  Country: None (occurrence: None)
  Receive Date: 20060731
  Receipt Date: 20060221
  Transmission Date: 20061208
  Serious: Yes (Other)
  Sender: FDA-Public Use
  Company Number: US-2006-003547

PATIENT
  Age: 35 Year
  Sex: Male
  Weight: 83.8 kg

DRUGS (1)
  1. MAGNEVIST [Suspect]
     Indication: NUCLEAR MAGNETIC RESONANCE IMAGING
     Dosage: 17 ML, 1 DOSE, INTRAVENOUS
     Route: 042
     Dates: start: 20050831, end: 20050831

REACTIONS (4)
  - CHOKING SENSATION [None]
  - DYSPNOEA [None]
  - PRURITUS [None]
  - SPEECH DISORDER [None]
